FAERS Safety Report 8361597-2 (Version None)
Quarter: 2012Q2

REPORT INFORMATION
  Report Type: 
  Country: None (occurrence: None)
  Receive Date: 20120515
  Receipt Date: 20120511
  Transmission Date: 20120825
  Serious: Yes (Hospitalization)
  Sender: FDA-Public Use
  Company Number: US-B.I. PHARMACEUTICALS,INC./RIDGEFIELD-2012-BP-10643BP

PATIENT
  Sex: Male

DRUGS (15)
  1. METOLAZONE [Concomitant]
     Indication: CARDIAC FAILURE CONGESTIVE
  2. PRAVASTATIN [Concomitant]
     Indication: BLOOD CHOLESTEROL INCREASED
     Dosage: 10 MG
     Route: 048
  3. SYMBICORT [Concomitant]
     Indication: EMPHYSEMA
     Route: 055
  4. POTASSIUM CHLORIDE [Concomitant]
     Indication: MINERAL SUPPLEMENTATION
     Dosage: 40 MEQ
     Route: 048
  5. ASPIRIN [Concomitant]
     Dosage: 81 MG
     Route: 048
  6. MUCINEX [Concomitant]
     Dosage: 1200 MG
     Route: 048
  7. PRADAXA [Suspect]
     Indication: ATRIAL FIBRILLATION
     Dosage: 150 MG
     Route: 048
     Dates: end: 20120401
  8. PRIMIDONE [Concomitant]
     Indication: ESSENTIAL TREMOR
     Dosage: 250 MG
     Route: 048
  9. ADVAIR DISKUS 100/50 [Concomitant]
     Indication: EMPHYSEMA
     Route: 055
  10. DIGOXIN [Concomitant]
     Dosage: 0.125 MG
     Route: 048
  11. METOLAZONE [Concomitant]
     Indication: FLUID RETENTION
     Route: 048
  12. PROPRANOLOL [Concomitant]
     Indication: ESSENTIAL TREMOR
     Dosage: 40 MG
     Route: 048
  13. STOOL SOFTENER [Concomitant]
     Indication: CONSTIPATION
     Route: 048
  14. FLUTICASONE FUROATE [Concomitant]
     Indication: SEASONAL ALLERGY
     Route: 045
  15. SPIRONOLACTONE [Concomitant]
     Indication: CARDIAC FAILURE CONGESTIVE
     Dosage: 25 MG
     Route: 048

REACTIONS (2)
  - PULMONARY HAEMORRHAGE [None]
  - PULMONARY THROMBOSIS [None]
